FAERS Safety Report 20987230 (Version 1)
Quarter: 2022Q2

REPORT INFORMATION
  Report Type: Spontaneous
  Country: US (occurrence: None)
  Receive Date: 20220620
  Receipt Date: 20220620
  Transmission Date: 20220721
  Serious: Yes (Hospitalization)
  Sender: FDA-Public Use
  Company Number: None

PATIENT
  Sex: Male

DRUGS (6)
  1. ESBRIET [Suspect]
     Active Substance: PIRFENIDONE
     Indication: Idiopathic pulmonary fibrosis
     Dosage: TAKE 1 TABLET Y MOUTH THREE TIMES DAILY
     Route: 048
     Dates: start: 20201020
  2. ESCITALOPRAM TAB [Concomitant]
  3. LEXAPRO TAB [Concomitant]
  4. LOSARTAN POT TAB [Concomitant]
  5. OFLOXACIN DRO OP [Concomitant]
  6. PREGABALIN [Concomitant]
     Active Substance: PREGABALIN

REACTIONS (1)
  - Pneumothorax [None]
